FAERS Safety Report 20827449 (Version 2)
Quarter: 2022Q2

REPORT INFORMATION
  Report Type: Spontaneous
  Country: SK (occurrence: SK)
  Receive Date: 20220513
  Receipt Date: 20220627
  Transmission Date: 20220721
  Serious: Yes (Death)
  Sender: FDA-Public Use
  Company Number: SK-ABBVIE-22K-260-4394322-00

PATIENT
  Sex: Male

DRUGS (3)
  1. HUMIRA [Suspect]
     Active Substance: ADALIMUMAB
     Indication: Ankylosing spondylitis
     Route: 058
     Dates: start: 20140923, end: 202202
  2. ZALDIAR [Concomitant]
     Active Substance: ACETAMINOPHEN\TRAMADOL HYDROCHLORIDE
     Indication: Ankylosing spondylitis
     Dosage: 37.5/325 MILLIGRAMS
     Route: 048
  3. PREVENTAX [Concomitant]
     Indication: Arteriosclerosis
     Route: 048
     Dates: start: 2012

REACTIONS (3)
  - Lung neoplasm malignant [Fatal]
  - Brain oedema [Fatal]
  - Sepsis [Fatal]
